FAERS Safety Report 9523800 (Version 2)
Quarter: 2013Q4

REPORT INFORMATION
  Report Type: Spontaneous
  Country: US (occurrence: US)
  Receive Date: 20130916
  Receipt Date: 20131011
  Transmission Date: 20140711
  Serious: No
  Sender: FDA-Public Use
  Company Number: US-009507513-1309USA002513

PATIENT
  Age: 16 Year
  Sex: Female
  Weight: 63.39 kg

DRUGS (4)
  1. NEXPLANON [Suspect]
     Indication: CONTRACEPTION
     Dosage: 1 ROD /THREE YEARS
     Route: 023
     Dates: start: 20130417, end: 20130829
  2. NEXPLANON [Suspect]
     Dosage: 1 ROD/THREE YEARS
     Route: 059
     Dates: start: 20130829
  3. FLOVENT [Concomitant]
  4. PROAIR (ALBUTEROL SULFATE) [Concomitant]
     Dosage: UNK
     Dates: start: 20130417

REACTIONS (5)
  - Device kink [Recovered/Resolved]
  - Device damage [Recovered/Resolved]
  - Menstrual disorder [Recovered/Resolved]
  - Product quality issue [Unknown]
  - Incorrect route of drug administration [Recovered/Resolved]
